FAERS Safety Report 4874170-5 (Version None)
Quarter: 2006Q1

REPORT INFORMATION
  Report Type: 
  Country: None (occurrence: None)
  Receive Date: 20060106
  Receipt Date: 20051228
  Transmission Date: 20060701
  Serious: Yes (Other)
  Sender: FDA-Public Use
  Company Number: US-JNJFOC-20040803918

PATIENT
  Sex: Male
  Weight: 65.32 kg

DRUGS (2)
  1. CHILDREN'S MOTRIN COLD BERRY ORAL [Suspect]
  2. CHILDREN'S MOTRIN COLD BERRY ORAL [Suspect]
     Indication: PHARYNGOLARYNGEAL PAIN

REACTIONS (8)
  - BODY TEMPERATURE INCREASED [None]
  - DIZZINESS [None]
  - EAR PAIN [None]
  - GOITRE [None]
  - HYPERSENSITIVITY [None]
  - PERIORBITAL OEDEMA [None]
  - PYREXIA [None]
  - TYMPANIC MEMBRANE HYPERAEMIA [None]
